FAERS Safety Report 5931098-7 (Version None)
Quarter: 2008Q4

REPORT INFORMATION
  Report Type: 
  Country: None (occurrence: None)
  Receive Date: 20081022
  Receipt Date: 20081010
  Transmission Date: 20090506
  Serious: Yes (Life-Threatening, Hospitalization)
  Sender: FDA-Public Use
  Company Number: ADE2008-351

PATIENT
  Age: 60 Year
  Sex: Male

DRUGS (3)
  1. SIMVASTATIN [Suspect]
     Dosage: 20MG - PO
     Route: 048
     Dates: start: 20070801, end: 20080901
  2. LEVOTHYROXINE SODIUM [Concomitant]
  3. METFORMIN HCL [Concomitant]

REACTIONS (5)
  - ACUTE HEPATIC FAILURE [None]
  - ALCOHOL USE [None]
  - DIABETES MELLITUS [None]
  - DUODENAL ULCER PERFORATION [None]
  - HEPATITIS ACUTE [None]
